FAERS Safety Report 5330210-0 (Version None)
Quarter: 2007Q2

REPORT INFORMATION
  Report Type: 
  Country: None (occurrence: None)
  Receive Date: 20070521
  Receipt Date: 20070507
  Transmission Date: 20071010
  Serious: Yes (Life-Threatening, Disabling)
  Sender: FDA-Public Use
  Company Number: US-ELI_LILLY_AND_COMPANY-US200705000489

PATIENT
  Age: 48 Year
  Sex: Female

DRUGS (7)
  1. CYMBALTA [Suspect]
     Indication: MAJOR DEPRESSION
     Dosage: 30 MG, DAILY (1/D)
     Dates: start: 20050801
  2. CYMBALTA [Suspect]
     Dosage: 60 MG, DAILY (1/D)
  3. CYMBALTA [Suspect]
     Dosage: 90 MG, DAILY (1/D)
  4. CYMBALTA [Suspect]
     Dosage: 120 MG, DAILY (1/D)
     Dates: end: 20070428
  5. GEODON [Concomitant]
     Dosage: 160 MG, EACH EVENING
  6. KLONOPIN [Concomitant]
     Indication: ANXIETY DISORDER
     Dosage: 1 MG, EACH EVENING
  7. TRAZODONE HCL [Concomitant]
     Indication: INSOMNIA
     Dosage: 75 MG, EACH EVENING

REACTIONS (1)
  - HYPERTENSION [None]
